FAERS Safety Report 6706597-0 (Version None)
Quarter: 2010Q2

REPORT INFORMATION
  Report Type: 
  Country: None (occurrence: None)
  Receive Date: 20100503
  Receipt Date: 20100427
  Transmission Date: 20101027
  Serious: Yes (Hospitalization, Other)
  Sender: FDA-Public Use
  Company Number: US-TEVA-231071USA

PATIENT
  Sex: Female

DRUGS (2)
  1. PENICILLIN G POTASSIUM [Suspect]
  2. KLIOGEST [Concomitant]

REACTIONS (1)
  - BLOOD POTASSIUM DECREASED [None]
